FAERS Safety Report 11502585 (Version 2)
Quarter: 2016Q3

REPORT INFORMATION
  Report Type: Spontaneous
  Country: US (occurrence: US)
  Receive Date: 20150914
  Receipt Date: 20160915
  Transmission Date: 20161109
  Serious: No
  Sender: FDA-Public Use
  Company Number: US-ASTELLAS-2015US022559

PATIENT
  Sex: Male

DRUGS (1)
  1. XTANDI [Suspect]
     Active Substance: ENZALUTAMIDE
     Indication: HORMONE-REFRACTORY PROSTATE CANCER
     Dosage: 160 MG, ONCE DAILY (4X40 MG CAPSULES BY MOUTH DAILY)
     Route: 048

REACTIONS (5)
  - Amnesia [Unknown]
  - Fatigue [Not Recovered/Not Resolved]
  - Injury [Unknown]
  - Adverse drug reaction [Unknown]
  - Depression [Unknown]
